FAERS Safety Report 6666978-0 (Version None)
Quarter: 2010Q2

REPORT INFORMATION
  Report Type: 
  Country: None (occurrence: None)
  Receive Date: 20100405
  Receipt Date: 20100401
  Transmission Date: 20101027
  Serious: Yes (Other)
  Sender: FDA-Public Use
  Company Number: PHHY2010CH01580

PATIENT
  Sex: Male
  Weight: 31 kg

DRUGS (8)
  1. S-OIV FOCETRIA (NVD) [Suspect]
     Indication: IMMUNISATION
     Dosage: .5 ML
     Route: 030
     Dates: start: 20091120, end: 20091120
  2. S-OIV FOCETRIA (NVD) [Suspect]
     Dosage: .5 ML
     Route: 030
     Dates: start: 20091207, end: 20091207
  3. SANDIMMUNE [Suspect]
     Dosage: 50 MG, 2 PER DAY
  4. PREDNISONE TAB [Suspect]
     Dosage: 5 MG, UNK
  5. AZATHIOPRINE [Suspect]
     Dosage: 25 MG, 1 PER DAY
  6. CALCITRIOL [Concomitant]
  7. POTASSIUM [Concomitant]
  8. GROWTH HORMONE [Concomitant]

REACTIONS (7)
  - COUGH [None]
  - H1N1 INFLUENZA [None]
  - NASAL CONGESTION [None]
  - PYREXIA [None]
  - UPPER RESPIRATORY TRACT INFECTION [None]
  - VACCINATION FAILURE [None]
  - VIRAL TEST POSITIVE [None]
